FAERS Safety Report 24250077 (Version 1)
Quarter: 2024Q3

REPORT INFORMATION
  Report Type: Report from Study
  Country: US (occurrence: US)
  Receive Date: 20240826
  Receipt Date: 20240826
  Transmission Date: 20241017
  Serious: Yes (Other)
  Sender: BAYER
  Company Number: US-BAYER-2024A118512

PATIENT

DRUGS (2)
  1. GADAVIST [Suspect]
     Active Substance: GADOBUTROL
     Dosage: UNK UNK, IN TOTAL } 10 DOSES WITH GBCA
  2. OPTIMARK [Suspect]
     Active Substance: GADOVERSETAMIDE

REACTIONS (1)
  - Gadolinium deposition disease [Recovering/Resolving]
